FAERS Safety Report 4739720-8 (Version None)
Quarter: 2005Q3

REPORT INFORMATION
  Report Type: 
  Country: None (occurrence: None)
  Receive Date: 20050810
  Receipt Date: 20050502
  Transmission Date: 20060218
  Serious: No
  Sender: FDA-Public Use
  Company Number: US-GLAXOSMITHKLINE-A0556957A

PATIENT
  Age: 87 Year
  Sex: Female

DRUGS (3)
  1. PAXIL [Suspect]
     Indication: DEPRESSION
     Route: 048
  2. XANAX [Concomitant]
  3. NORVASC [Concomitant]

REACTIONS (1)
  - MEMORY IMPAIRMENT [None]
